FAERS Safety Report 23816946 (Version 2)
Quarter: 2024Q2

REPORT INFORMATION
  Report Type: Report from Study
  Country: BR (occurrence: BR)
  Receive Date: 20240504
  Receipt Date: 20240510
  Transmission Date: 20240716
  Serious: Yes (Death, Other)
  Sender: FDA-Public Use
  Company Number: BR-002147023-NVSC2024BR093554

PATIENT
  Sex: Male
  Weight: 95 kg

DRUGS (2)
  1. KYMRIAH [Suspect]
     Active Substance: TISAGENLECLEUCEL
     Indication: Diffuse large B-cell lymphoma
     Dosage: 1 DOSAGE FORM, ONCE/SINGLE (CELL DOSE 3)
     Route: 042
     Dates: start: 20230313, end: 20230313
  2. TOCILIZUMAB [Concomitant]
     Active Substance: TOCILIZUMAB
     Indication: Prophylaxis
     Dosage: UNK
     Route: 065
     Dates: start: 20230320, end: 20230320

REACTIONS (2)
  - Haemophagocytic lymphohistiocytosis [Fatal]
  - Cytokine release syndrome [Recovered/Resolved]
